FAERS Safety Report 5455596-8 (Version None)
Quarter: 2007Q3

REPORT INFORMATION
  Report Type: 
  Country: None (occurrence: None)
  Receive Date: 20070918
  Receipt Date: 20070330
  Transmission Date: 20080115
  Serious: Yes (Disabling)
  Sender: FDA-Public Use
  Company Number: US-ASTRAZENECA-2006UW21914

PATIENT
  Age: 35 Year
  Sex: Female
  Weight: 102.3 kg

DRUGS (3)
  1. SEROQUEL [Suspect]
     Indication: SCHIZOPHRENIA
     Route: 048
     Dates: start: 20010817, end: 20010914
  2. HALDOL [Concomitant]
  3. RISPERDAL [Concomitant]

REACTIONS (1)
  - TARDIVE DYSKINESIA [None]
